FAERS Safety Report 13899578 (Version 2)
Quarter: 2020Q4

REPORT INFORMATION
  Report Type: Spontaneous
  Country: US (occurrence: US)
  Receive Date: 20170823
  Receipt Date: 20201027
  Transmission Date: 20210113
  Serious: No
  Sender: FDA-Public Use
  Company Number: US-JAZZ-2017-US-008085

PATIENT
  Sex: Female

DRUGS (20)
  1. MAGNESIUM AAA [Concomitant]
  2. NUVARING [Concomitant]
     Active Substance: ETHINYL ESTRADIOL\ETONOGESTREL
  3. ASCORBIC ACID. [Concomitant]
     Active Substance: ASCORBIC ACID
  4. NORCO [Concomitant]
     Active Substance: ACETAMINOPHEN\HYDROCODONE BITARTRATE
  5. LAMICTAL [Concomitant]
     Active Substance: LAMOTRIGINE
  6. RETIN-A [Concomitant]
     Active Substance: TRETINOIN
  7. CLINDAMYCIN PHOSPHATE. [Concomitant]
     Active Substance: CLINDAMYCIN PHOSPHATE
  8. ECHINACEA PURPUREA [Concomitant]
     Active Substance: ECHINACEA PURPUREA WHOLE
  9. NUVIGIL [Concomitant]
     Active Substance: ARMODAFINIL
  10. VITAMIN B COMPLEX [Concomitant]
     Active Substance: CYANOCOBALAMIN\DEXPANTHENOL\NIACINAMIDE\PYRIDOXINE HYDROCHLORIDE\RIBOFLAVIN 5^-PHOSPHATE SODIUM\THIAMINE HYDROCHLORIDE\VITAMIN B COMPLEX
  11. XYREM [Suspect]
     Active Substance: SODIUM OXYBATE
     Indication: NARCOLEPSY
     Dosage: 2.25G, BID
     Route: 048
     Dates: start: 201608, end: 201608
  12. DOXYCYCLINE HYCLATE. [Concomitant]
     Active Substance: DOXYCYCLINE HYCLATE
  13. MODAFINIL. [Concomitant]
     Active Substance: MODAFINIL
  14. HYDROXYZINE HYDROCHLORIDE. [Concomitant]
     Active Substance: HYDROXYZINE HYDROCHLORIDE
  15. XYREM [Suspect]
     Active Substance: SODIUM OXYBATE
     Dosage: 4.5G, BID
     Route: 048
     Dates: start: 201609
  16. FLUOXETINE HCL [Concomitant]
     Active Substance: FLUOXETINE HYDROCHLORIDE
  17. SLEEPYTIME HERB [Concomitant]
  18. FISH OIL CONCENTRATE [Concomitant]
     Active Substance: FISH OIL
  19. XYREM [Suspect]
     Active Substance: SODIUM OXYBATE
     Dosage: DOSE ADJUSTMENT
     Route: 048
     Dates: start: 201608, end: 201609
  20. AMOXICILLIN. [Concomitant]
     Active Substance: AMOXICILLIN

REACTIONS (1)
  - Anxiety [Recovered/Resolved]
